FAERS Safety Report 24281078 (Version 1)
Quarter: 2024Q3

REPORT INFORMATION
  Report Type: Spontaneous
  Country: GR (occurrence: GR)
  Receive Date: 20240904
  Receipt Date: 20240904
  Transmission Date: 20241017
  Serious: Yes (Hospitalization, Other)
  Sender: ACCORD
  Company Number: GR-EMA-DD-20240816-7482675-062913

PATIENT
  Age: 67 Year
  Sex: Female

DRUGS (4)
  1. CAPECITABINE [Suspect]
     Active Substance: CAPECITABINE
     Indication: Gastrointestinal adenocarcinoma
     Dosage: UNK
  2. OXALIPLATIN [Suspect]
     Active Substance: OXALIPLATIN
     Indication: Gastrointestinal adenocarcinoma
     Dosage: UNK
  3. ONDANSETRON [Suspect]
     Active Substance: ONDANSETRON
     Indication: Gastrointestinal adenocarcinoma
     Dosage: UNK
  4. ONDANSETRON [Suspect]
     Active Substance: ONDANSETRON
     Indication: Prophylaxis of nausea and vomiting
     Dosage: UNK

REACTIONS (1)
  - Gastrointestinal anastomotic leak [Unknown]
